FAERS Safety Report 13401348 (Version 1)
Quarter: 2017Q2

REPORT INFORMATION
  Report Type: Spontaneous
  Country: US (occurrence: US)
  Receive Date: 20170404
  Receipt Date: 20170404
  Transmission Date: 20170830
  Serious: No
  Sender: FDA-Public Use
  Company Number: US-ELI_LILLY_AND_COMPANY-US201608000516

PATIENT
  Sex: Female
  Weight: 119 kg

DRUGS (2)
  1. CYMBALTA [Suspect]
     Active Substance: DULOXETINE HYDROCHLORIDE
     Dosage: 30 MG, QD
     Route: 048
  2. CYMBALTA [Suspect]
     Active Substance: DULOXETINE HYDROCHLORIDE
     Indication: POLYMYALGIA RHEUMATICA
     Dosage: 60 MG, UNKNOWN
     Route: 065
     Dates: end: 201308

REACTIONS (7)
  - Headache [Unknown]
  - Drug withdrawal syndrome [Recovered/Resolved]
  - Insomnia [Unknown]
  - Dysphoria [Unknown]
  - Fatigue [Unknown]
  - Anxiety [Unknown]
  - Dizziness [Unknown]
